FAERS Safety Report 23079156 (Version 1)
Quarter: 2023Q4

REPORT INFORMATION
  Report Type: Spontaneous
  Country: CN (occurrence: CN)
  Receive Date: 20231018
  Receipt Date: 20231018
  Transmission Date: 20240110
  Serious: Yes (Life-Threatening, Other)
  Sender: FDA-Public Use
  Company Number: CN-PFIZER INC-PV202300169925

PATIENT
  Age: 61 Year
  Sex: Male
  Weight: 76 kg

DRUGS (4)
  1. CYTARABINE [Suspect]
     Active Substance: CYTARABINE
     Indication: Acute leukaemia
     Dosage: 0.2 G, 1X/DAY
     Route: 041
     Dates: start: 20230914, end: 20230918
  2. CYTARABINE [Suspect]
     Active Substance: CYTARABINE
     Indication: White blood cell count increased
  3. TRETINOIN [Concomitant]
     Active Substance: TRETINOIN
     Indication: Acute leukaemia
     Dosage: UNK
     Dates: start: 20230910
  4. ARSENIC TRIOXIDE [Concomitant]
     Active Substance: ARSENIC TRIOXIDE
     Indication: Acute leukaemia
     Dosage: UNK
     Dates: start: 20230910, end: 20230914

REACTIONS (3)
  - Myelosuppression [Recovering/Resolving]
  - Anaemia [Recovering/Resolving]
  - Haemorrhagic diathesis [Unknown]

NARRATIVE: CASE EVENT DATE: 20230925
